FAERS Safety Report 5694149-3 (Version None)
Quarter: 2008Q2

REPORT INFORMATION
  Report Type: 
  Country: None (occurrence: None)
  Receive Date: 20080402
  Receipt Date: 20080327
  Transmission Date: 20081010
  Serious: Yes (Other)
  Sender: FDA-Public Use
  Company Number: 163-C5013-08031829

PATIENT
  Sex: Female

DRUGS (1)
  1. CC-5013 (LENALIDOMIDE) (25 MILLIGRAM, CAPSULES) [Suspect]
     Indication: DRUG USE FOR UNKNOWN INDICATION
     Dosage: 25 MG, 1 IN 1 D, ORAL
     Route: 048
     Dates: start: 20080320, end: 20080323

REACTIONS (2)
  - PREGNANCY [None]
  - TRANSMISSION OF DRUG VIA SEMEN [None]
